FAERS Safety Report 4396392-2 (Version None)
Quarter: 2004Q3

REPORT INFORMATION
  Report Type: 
  Country: None (occurrence: None)
  Receive Date: 20040708
  Receipt Date: 20040630
  Transmission Date: 20050211
  Serious: Yes (Disabling)
  Sender: FDA-Public Use
  Company Number: DEWYE864730JUN04

PATIENT
  Age: 75 Year
  Sex: Male

DRUGS (11)
  1. EFFEXOR XR [Suspect]
     Indication: DEPRESSION
     Dosage: SEE IMAGE ORAL
     Route: 048
     Dates: end: 20040330
  2. EFFEXOR XR [Suspect]
     Indication: DEPRESSION
     Dosage: SEE IMAGE ORAL
     Route: 048
     Dates: start: 20040331, end: 20040402
  3. CLOPIDOGREL (CLOPIDOGREL) [Concomitant]
  4. RYTMONORM (PROPAFENONE HYDROCHLORIDE) [Concomitant]
  5. ACETYLSALICYLIC ACID SRT [Concomitant]
  6. ATORVASTATIN CALCIUM [Concomitant]
  7. LEVODOPA BENSERAZIDE HYDROCHLO (BENSERAZIDE HYDROCHLORIDE/LEVODOPA) [Concomitant]
  8. VALSARTAN (VALSARTAN) [Concomitant]
  9. ZOPICLONE (ZOPICLONE) [Concomitant]
  10. TROSPIUM CHLORIDE (TROSPIUM CHLORIDE) [Concomitant]
  11. HYDROCHLOROTHIAZIDE [Concomitant]

REACTIONS (3)
  - CONDITION AGGRAVATED [None]
  - DEPRESSION [None]
  - OESOPHAGEAL ACHALASIA [None]
